FAERS Safety Report 9642828 (Version 3)
Quarter: 2013Q4

REPORT INFORMATION
  Report Type: Spontaneous
  Country: US (occurrence: US)
  Receive Date: 20131024
  Receipt Date: 20131125
  Transmission Date: 20140711
  Serious: Yes (Hospitalization, Other)
  Sender: FDA-Public Use
  Company Number: US-AMGEN-USASP2013073878

PATIENT
  Age: 7 Year
  Sex: Female
  Weight: 24 kg

DRUGS (13)
  1. EPOGEN [Suspect]
     Indication: NEPHROGENIC ANAEMIA
     Dosage: 14000 UNIT, (600 IU/KG) THREE TIMES A WEEK
     Route: 058
     Dates: start: 20100430
  2. SENSIPAR [Concomitant]
     Indication: HYPERPARATHYROIDISM SECONDARY
     Dosage: 30 MG, QD (FIRST DOSE WAS 15 MG)
     Route: 048
     Dates: start: 20111115
  3. SENSIPAR [Concomitant]
     Dosage: 60 MG, QD
     Route: 048
     Dates: start: 20111115
  4. NEPHROCAPS                         /01801401/ [Concomitant]
     Dosage: UNK
  5. ZINC [Concomitant]
     Dosage: UNK
  6. B 12 [Concomitant]
     Dosage: UNK
  7. FOLATE [Concomitant]
     Dosage: UNK
  8. ROCALTROL [Concomitant]
     Indication: HYPERPARATHYROIDISM
     Dosage: 2 MUG, QD
     Route: 048
     Dates: start: 20100506
  9. IRON [Concomitant]
     Dosage: UNK
  10. VITAMIN D                          /00107901/ [Concomitant]
     Dosage: UNK
  11. FERROUS SULFATE [Concomitant]
     Indication: ANAEMIA
     Dosage: 132 MG, BID
     Route: 048
     Dates: start: 20100430
  12. KAYEXALATE [Concomitant]
     Indication: HYPERKALAEMIA
     Dosage: 12.5 G, QD
     Route: 048
     Dates: start: 20100427
  13. NEPHRONEX [Concomitant]
     Indication: RENAL FAILURE CHRONIC
     Dosage: 100 MUG, QD
     Route: 048
     Dates: start: 20100430

REACTIONS (12)
  - Anaemia [Not Recovered/Not Resolved]
  - Drug ineffective [Unknown]
  - Haemorrhage [Unknown]
  - Generalised oedema [Not Recovered/Not Resolved]
  - Femur fracture [Unknown]
  - Gastric perforation [Unknown]
  - Gastrostomy [Unknown]
  - Bone disorder [Unknown]
  - Blood fibrinogen abnormal [Not Recovered/Not Resolved]
  - Transferrin saturation increased [Unknown]
  - Blood lactate dehydrogenase abnormal [Not Recovered/Not Resolved]
  - Haptoglobin abnormal [Unknown]
